FAERS Safety Report 7142304-8 (Version None)
Quarter: 2010Q4

REPORT INFORMATION
  Report Type: 
  Country: None (occurrence: None)
  Receive Date: 20101207
  Receipt Date: 20101130
  Transmission Date: 20110411
  Serious: No
  Sender: FDA-Public Use
  Company Number: US-PFIZER INC-2010160917

PATIENT
  Sex: Female
  Weight: 82 kg

DRUGS (3)
  1. PREMPRO [Suspect]
     Indication: MENOPAUSE
     Dosage: 0.3MG/1.5MG, DAILY
     Route: 048
     Dates: start: 20101028, end: 20101127
  2. PREMPRO [Suspect]
     Indication: HOT FLUSH
  3. HYDROMORPHONE [Concomitant]
     Indication: PAIN
     Dosage: 4 MG, UNK

REACTIONS (3)
  - MALAISE [None]
  - NASOPHARYNGITIS [None]
  - SINUSITIS [None]
